FAERS Safety Report 7239392-7 (Version None)
Quarter: 2011Q1

REPORT INFORMATION
  Report Type: 
  Country: None (occurrence: None)
  Receive Date: 20110121
  Receipt Date: 20110113
  Transmission Date: 20110831
  Serious: Yes (Other)
  Sender: FDA-Public Use
  Company Number: GB-ABBOTT-10P-167-0680249-00

PATIENT
  Sex: Female

DRUGS (14)
  1. SULPHASALAZINE [Concomitant]
     Indication: PRODUCT USED FOR UNKNOWN INDICATION
  2. RIFINAH [Concomitant]
     Indication: PRODUCT USED FOR UNKNOWN INDICATION
  3. HUMIRA [Suspect]
     Indication: PSORIATIC ARTHROPATHY
     Dosage: NORMAL DOSE
     Route: 058
     Dates: start: 20100801, end: 20101001
  4. FRUSEMIDE [Concomitant]
     Indication: PRODUCT USED FOR UNKNOWN INDICATION
  5. ZOTON [Concomitant]
     Indication: PRODUCT USED FOR UNKNOWN INDICATION
  6. ORAMORPH SR [Concomitant]
     Indication: BREAKTHROUGH PAIN
     Dosage: UP TO 3 TIMES A DAY (TDS)
  7. PYRIDOXINE HCL [Concomitant]
     Indication: LATENT TUBERCULOSIS
  8. CITALOPRAM [Concomitant]
     Indication: PRODUCT USED FOR UNKNOWN INDICATION
  9. ARCOXIA [Concomitant]
     Indication: PRODUCT USED FOR UNKNOWN INDICATION
  10. ADCAL D3 [Concomitant]
     Indication: PRODUCT USED FOR UNKNOWN INDICATION
  11. DEPO-MEDROL [Concomitant]
     Indication: PRODUCT USED FOR UNKNOWN INDICATION
     Route: 030
     Dates: start: 20101028, end: 20101028
  12. ETORICOXIB [Concomitant]
     Indication: PRODUCT USED FOR UNKNOWN INDICATION
  13. LANSOPRAZOLE [Concomitant]
     Indication: PRODUCT USED FOR UNKNOWN INDICATION
  14. MST [Concomitant]
     Indication: PRODUCT USED FOR UNKNOWN INDICATION

REACTIONS (23)
  - ECZEMA [None]
  - SKIN EXFOLIATION [None]
  - PSORIASIS [None]
  - NAUSEA [None]
  - OEDEMA PERIPHERAL [None]
  - JOINT SWELLING [None]
  - CONTUSION [None]
  - HEADACHE [None]
  - PARAESTHESIA [None]
  - DECREASED APPETITE [None]
  - SKIN HAEMORRHAGE [None]
  - EAR INFECTION [None]
  - LETHARGY [None]
  - CANDIDIASIS [None]
  - ABDOMINAL PAIN UPPER [None]
  - VAGINAL HAEMORRHAGE [None]
  - RECTAL HAEMORRHAGE [None]
  - PAIN IN JAW [None]
  - MOUTH ULCERATION [None]
  - DISTURBANCE IN SEXUAL AROUSAL [None]
  - ABDOMINAL DISCOMFORT [None]
  - ARTHRALGIA [None]
  - HORDEOLUM [None]
